FAERS Safety Report 4806776-3 (Version None)
Quarter: 2005Q4

REPORT INFORMATION
  Report Type: 
  Country: None (occurrence: None)
  Receive Date: 20051019
  Receipt Date: 20051019
  Transmission Date: 20060501
  Serious: Yes (Other)
  Sender: FDA-Public Use
  Company Number: None

PATIENT
  Age: 52 Year
  Sex: Female
  Weight: 62.5964 kg

DRUGS (2)
  1. AMOXICILLIN [Suspect]
     Indication: PHARYNGITIS
     Dosage: 2 CAPSULES EVERY 12 HOURS BUCCAL
     Route: 002
     Dates: start: 20050901, end: 20050902
  2. AMOXICILLIN [Suspect]
     Indication: TONSILLITIS
     Dosage: 2 CAPSULES EVERY 12 HOURS BUCCAL
     Route: 002
     Dates: start: 20050901, end: 20050902

REACTIONS (9)
  - ABDOMINAL DISTENSION [None]
  - DYSPEPSIA [None]
  - FEELING ABNORMAL [None]
  - GASTROINTESTINAL DISORDER [None]
  - GLOSSODYNIA [None]
  - PALPITATIONS [None]
  - SWOLLEN TONGUE [None]
  - TONGUE DISCOLOURATION [None]
  - TONGUE DISORDER [None]
